FAERS Safety Report 13177607 (Version 1)
Quarter: 2017Q1

REPORT INFORMATION
  Report Type: Report from Study
  Country: US (occurrence: US)
  Receive Date: 20170201
  Receipt Date: 20170201
  Transmission Date: 20170428
  Serious: No
  Sender: FDA-Public Use
  Company Number: US-EXELIXIS-CABO-16006618

PATIENT
  Sex: Male

DRUGS (7)
  1. COMETRIQ [Suspect]
     Active Substance: CABOZANTINIB S-MALATE
     Dosage: 40 MG, QD
     Route: 048
     Dates: start: 201606, end: 201606
  2. CALCIUM [Concomitant]
     Active Substance: CALCIUM
  3. COMETRIQ [Suspect]
     Active Substance: CABOZANTINIB S-MALATE
     Indication: RENAL CANCER
     Dosage: 60 MG, QD
     Route: 048
     Dates: start: 20160121, end: 201606
  4. ENOXAPARIN [Concomitant]
     Active Substance: ENOXAPARIN
  5. VITAMIN D [Concomitant]
     Active Substance: CHOLECALCIFEROL
  6. LEVOTHYROXINE. [Concomitant]
     Active Substance: LEVOTHYROXINE
  7. AMLODIPINE [Concomitant]
     Active Substance: AMLODIPINE BESYLATE

REACTIONS (2)
  - Off label use [Unknown]
  - Endodontic procedure [Recovered/Resolved]
